FAERS Safety Report 7227806-8 (Version None)
Quarter: 2011Q1

REPORT INFORMATION
  Report Type: 
  Country: None (occurrence: None)
  Receive Date: 20110114
  Receipt Date: 20110110
  Transmission Date: 20110831
  Serious: Yes (Hospitalization)
  Sender: FDA-Public Use
  Company Number: US-JNJFOC-20110102684

PATIENT
  Sex: Male
  Weight: 127.01 kg

DRUGS (2)
  1. FENTANYL-100 [Suspect]
     Indication: BACK PAIN
     Dosage: NDC#0781-7243-55
     Route: 062
  2. FENTANYL-100 [Suspect]
     Indication: BACK PAIN
     Route: 062

REACTIONS (4)
  - HIP FRACTURE [None]
  - MUSCULAR WEAKNESS [None]
  - SKELETAL INJURY [None]
  - FALL [None]
